FAERS Safety Report 17620912 (Version 1)
Quarter: 2020Q2

REPORT INFORMATION
  Report Type: Report from Study
  Country: US (occurrence: US)
  Receive Date: 20200403
  Receipt Date: 20200403
  Transmission Date: 20200713
  Serious: Yes (Other)
  Sender: FDA-Public Use
  Company Number: US-ROCHE-2575187

PATIENT

DRUGS (1)
  1. BEVACIZUMAB. [Suspect]
     Active Substance: BEVACIZUMAB
     Indication: GLIOBLASTOMA MULTIFORME
     Route: 042

REACTIONS (9)
  - Hypertension [Unknown]
  - Psychotic disorder [Unknown]
  - Lymphopenia [Unknown]
  - Transaminases increased [Unknown]
  - Cough [Unknown]
  - Dysphagia [Unknown]
  - Seizure [Unknown]
  - Muscular weakness [Unknown]
  - Hyperglycaemia [Unknown]
